FAERS Safety Report 20090140 (Version 4)
Quarter: 2022Q1

REPORT INFORMATION
  Report Type: Report from Study
  Country: US (occurrence: US)
  Receive Date: 20211119
  Receipt Date: 20220228
  Transmission Date: 20220423
  Serious: Yes (Other)
  Sender: FDA-Public Use
  Company Number: US-NOVARTISPH-NVSC2021US258248

PATIENT
  Sex: Female

DRUGS (2)
  1. OMNITROPE [Suspect]
     Active Substance: SOMATROPIN
     Indication: Product used for unknown indication
     Dosage: UNK
     Route: 058
  2. OMNITROPE [Suspect]
     Active Substance: SOMATROPIN
     Dosage: UNK, QD
     Route: 054

REACTIONS (6)
  - Brain neoplasm [Unknown]
  - Product temperature excursion issue [Unknown]
  - Cognitive disorder [Unknown]
  - Product dose omission in error [Unknown]
  - Product storage error [Unknown]
  - Incorrect route of product administration [Unknown]
